FAERS Safety Report 18909055 (Version 2)
Quarter: 2021Q1

REPORT INFORMATION
  Report Type: Spontaneous
  Country: DE (occurrence: DE)
  Receive Date: 20210218
  Receipt Date: 20210226
  Transmission Date: 20210420
  Serious: Yes (Other)
  Sender: FDA-Public Use
  Company Number: NVSC2021DE028854

PATIENT
  Age: 1 Day
  Sex: Female
  Weight: 3.51 kg

DRUGS (9)
  1. L?THYROXINE [Concomitant]
     Active Substance: LEVOTHYROXINE
     Indication: FOETAL EXPOSURE DURING PREGNANCY
     Dosage: MOTHER DOSE:: 50 [?G/D ]
     Route: 064
     Dates: start: 20181209, end: 20190826
  2. PARACETAMOL [Concomitant]
     Active Substance: ACETAMINOPHEN
     Indication: FOETAL EXPOSURE DURING PREGNANCY
     Dosage: MOTHER DOSE: 500 [MG/D (BEI BEDARF) ]/ IN TOTAL, NO MORE HAN 25 TABLETS DURING THE WHOLE PREGNANCY
     Route: 064
  3. PREDNISOLON [Concomitant]
     Active Substance: PREDNISOLONE
     Indication: FOETAL EXPOSURE DURING PREGNANCY
     Dosage: MOTHER DOSE: 10 [MG/D (BIS 5 MG/D) ]
     Route: 064
     Dates: start: 20181209, end: 20190826
  4. AGYRAX [Concomitant]
     Active Substance: MECLIZINE HYDROCHLORIDE
     Indication: FOETAL EXPOSURE DURING PREGNANCY
     Dosage: MOTHER DOSE: 100 MG, QD
     Route: 064
  5. FRISIUM [Suspect]
     Active Substance: CLOBAZAM
     Indication: FOETAL EXPOSURE DURING PREGNANCY
     Dosage: MOTHER DOSE: 20 [MG/D (BIS 5) ]/ FIRST 5 MG/, THEN 10 MG/D. FROM GW 35: 20 MG/D
     Route: 064
     Dates: start: 20190801, end: 20190826
  6. CIMZIA [Concomitant]
     Active Substance: CERTOLIZUMAB PEGOL
     Indication: FOETAL EXPOSURE DURING PREGNANCY
     Dosage: MOTHER DOSE: 200 [MG/2WK ]
     Route: 064
     Dates: start: 20181209, end: 20190826
  7. PANTOPRAZOL [Concomitant]
     Active Substance: PANTOPRAZOLE SODIUM
     Indication: FOETAL EXPOSURE DURING PREGNANCY
     Dosage: MOTHER DOSE: 40 [MG/D (BEI BEDARF) ]
     Route: 064
  8. LAMOTRIGIN [Suspect]
     Active Substance: LAMOTRIGINE
     Indication: FOETAL EXPOSURE DURING PREGNANCY
     Dosage: MOTHER DOSE: 2000 [MG/D (BIS 450)]
     Route: 064
     Dates: start: 20181209, end: 20190826
  9. IBUPROFEN. [Concomitant]
     Active Substance: IBUPROFEN
     Indication: FOETAL EXPOSURE DURING PREGNANCY
     Dosage: MOTHER DOSE: IN TOTAL, 10 TABLES DURING PREGNANCY
     Route: 064

REACTIONS (2)
  - Myoclonus [Unknown]
  - Floppy infant [Recovered/Resolved]

NARRATIVE: CASE EVENT DATE: 20190826
